FAERS Safety Report 12985273 (Version 2)
Quarter: 2017Q1

REPORT INFORMATION
  Report Type: Spontaneous
  Country: ES (occurrence: ES)
  Receive Date: 20161129
  Receipt Date: 20170130
  Transmission Date: 20170428
  Serious: Yes (Other)
  Sender: FDA-Public Use
  Company Number: PHHY2016ES161251

PATIENT
  Age: 28 Year
  Sex: Female

DRUGS (1)
  1. ELTROMBOPAG [Suspect]
     Active Substance: ELTROMBOPAG
     Indication: APLASTIC ANAEMIA
     Dosage: 75 MG, QD
     Route: 065
     Dates: start: 201603, end: 20160901

REACTIONS (4)
  - Blood smear test abnormal [Unknown]
  - Gene mutation [Unknown]
  - Bone marrow disorder [Unknown]
  - Cytogenetic abnormality [Unknown]
